FAERS Safety Report 5553445-0 (Version None)
Quarter: 2007Q4

REPORT INFORMATION
  Report Type: 
  Country: None (occurrence: None)
  Receive Date: 20071211
  Receipt Date: 20071204
  Transmission Date: 20080405
  Serious: Yes (Other)
  Sender: FDA-Public Use
  Company Number: 2007SP024357

PATIENT
  Sex: Male

DRUGS (2)
  1. PEG-INTRON [Suspect]
     Indication: HEPATITIS C
     Dosage: SC
     Route: 058
     Dates: start: 19990101, end: 19990101
  2. RIBAVIRIN [Suspect]
     Indication: HEPATITIS C
     Dosage: PO
     Route: 048
     Dates: start: 19990101, end: 19990101

REACTIONS (5)
  - FATIGUE [None]
  - HEADACHE [None]
  - HEPATIC CIRRHOSIS [None]
  - INFLUENZA LIKE ILLNESS [None]
  - NO THERAPEUTIC RESPONSE [None]
